FAERS Safety Report 10236367 (Version 1)
Quarter: 2014Q2

REPORT INFORMATION
  Report Type: Spontaneous
  Country: FR (occurrence: FR)
  Receive Date: 20140613
  Receipt Date: 20140613
  Transmission Date: 20141212
  Serious: Yes (Hospitalization)
  Sender: FDA-Public Use
  Company Number: FR-WATSON-2014-12338

PATIENT
  Age: 72 Year
  Sex: Male

DRUGS (6)
  1. CARBOPLATINE ACTAVIS [Suspect]
     Indication: LUNG ADENOCARCINOMA
     Dosage: UNK
     Route: 042
     Dates: start: 20140203, end: 20140203
  2. CARBOPLATINE ACTAVIS [Suspect]
     Dosage: UNK
     Route: 042
     Dates: start: 20140113, end: 20140113
  3. ALIMTA [Suspect]
     Indication: LUNG ADENOCARCINOMA
     Dosage: DOSE REDUCED 50 %
     Route: 042
     Dates: start: 20140318, end: 20140318
  4. ALIMTA [Suspect]
     Dosage: DOSE REDUCED 50 %
     Route: 042
     Dates: start: 20140224, end: 20140224
  5. ALIMTA [Suspect]
     Dosage: DOSE REDUCED 20%
     Route: 042
     Dates: start: 20140203, end: 20140203
  6. ALIMTA [Suspect]
     Dosage: 875 MG, DAILY
     Route: 042
     Dates: start: 20140113, end: 20140113

REACTIONS (2)
  - Renal failure [Unknown]
  - Anaemia [Recovering/Resolving]
